FAERS Safety Report 20068715 (Version 1)
Quarter: 2021Q4

REPORT INFORMATION
  Report Type: Spontaneous
  Country: US (occurrence: US)
  Receive Date: 20211115
  Receipt Date: 20211115
  Transmission Date: 20220303
  Serious: No
  Sender: FDA-Public Use
  Company Number: US-GLAXOSMITHKLINE-US2021229234

PATIENT

DRUGS (2)
  1. FLONASE ALLERGY RELIEF [Suspect]
     Active Substance: FLUTICASONE PROPIONATE
     Indication: Sinusitis
     Dosage: UNK, QD (ONE SQUIRT IN EACH NOSTRIL EVERY MORNING OR GO TO BED)
  2. ACCUTANE [Suspect]
     Active Substance: ISOTRETINOIN
     Indication: Sinusitis
     Dosage: UNK

REACTIONS (4)
  - Nasal disorder [Unknown]
  - Hypersensitivity [Unknown]
  - Drug effective for unapproved indication [Unknown]
  - Inappropriate schedule of product administration [Unknown]
